FAERS Safety Report 13136699 (Version 1)
Quarter: 2017Q1

REPORT INFORMATION
  Report Type: Spontaneous
  Country: CN (occurrence: CN)
  Receive Date: 20170123
  Receipt Date: 20170123
  Transmission Date: 20170428
  Serious: Yes (Other)
  Sender: FDA-Public Use
  Company Number: CN-ALVOGEN-2017-ALVOGEN-091265

PATIENT
  Age: 35 Year
  Sex: Female

DRUGS (4)
  1. MELOXICAM. [Suspect]
     Active Substance: MELOXICAM
     Indication: DESMOID TUMOUR
  2. DOXORUBICIN [Suspect]
     Active Substance: DOXORUBICIN
     Indication: DESMOID TUMOUR
     Route: 042
     Dates: start: 20121011
  3. DTIC [Suspect]
     Active Substance: DACARBAZINE
     Indication: DESMOID TUMOUR
     Route: 042
     Dates: start: 20121011
  4. MELOXICAM. [Suspect]
     Active Substance: MELOXICAM
     Indication: DESMOID TUMOUR
     Route: 042
     Dates: start: 20121011

REACTIONS (1)
  - Intestinal perforation [Recovered/Resolved with Sequelae]
